FAERS Safety Report 23224142 (Version 1)
Quarter: 2023Q4

REPORT INFORMATION
  Report Type: Spontaneous
  Country: US (occurrence: US)
  Receive Date: 20231124
  Receipt Date: 20231124
  Transmission Date: 20240110
  Serious: No
  Sender: FDA-Public Use
  Company Number: ENDG23-03199

PATIENT
  Sex: Female

DRUGS (1)
  1. APLISOL [Suspect]
     Active Substance: TUBERCULIN PURIFIED PROTEIN DERIVATIVE
     Indication: Product used for unknown indication
     Dosage: UNK UNKNOWN, SINGLE
     Route: 065
     Dates: start: 20220602, end: 20220602

REACTIONS (3)
  - Vitreous floaters [Not Recovered/Not Resolved]
  - Swelling [Unknown]
  - Head discomfort [Unknown]

NARRATIVE: CASE EVENT DATE: 20220601
